FAERS Safety Report 4722145-9 (Version None)
Quarter: 2005Q3

REPORT INFORMATION
  Report Type: 
  Country: None (occurrence: None)
  Receive Date: 20050722
  Receipt Date: 20040809
  Transmission Date: 20060218
  Serious: No
  Sender: FDA-Public Use
  Company Number: US-GLAXOSMITHKLINE-A0521555A

PATIENT
  Sex: Female

DRUGS (5)
  1. AVANDIA [Suspect]
     Dosage: 1MG PER DAY
     Route: 048
     Dates: start: 20040709
  2. STARLIX [Concomitant]
  3. TIAZAC [Concomitant]
  4. PROZAC [Concomitant]
  5. HORMONE REPLACEMENT THERAPY [Concomitant]

REACTIONS (1)
  - DENTAL CARIES [None]
